FAERS Safety Report 13833843 (Version 1)
Quarter: 2017Q3

REPORT INFORMATION
  Report Type: Spontaneous
  Country: US (occurrence: US)
  Receive Date: 20170804
  Receipt Date: 20170804
  Transmission Date: 20171127
  Serious: No
  Sender: FDA-Public Use
  Company Number: US-BAYER-2017-149456

PATIENT
  Age: 88 Year
  Sex: Male
  Weight: 69 kg

DRUGS (2)
  1. ALEVE [Suspect]
     Active Substance: NAPROXEN SODIUM
     Indication: PAIN
     Dosage: UNK
     Route: 048
  2. PROSTATIC [Concomitant]
     Dosage: UNK

REACTIONS (3)
  - Swelling [Unknown]
  - Off label use [Unknown]
  - Blood pressure increased [Recovered/Resolved]
